FAERS Safety Report 10450409 (Version 1)
Quarter: 2014Q3

REPORT INFORMATION
  Report Type: Spontaneous
  Country: US (occurrence: None)
  Receive Date: 20140910
  Receipt Date: 20140910
  Transmission Date: 20150326
  Serious: Yes (Hospitalization, Other)
  Sender: FDA-Public Use
  Company Number: 2014SCAL000085

PATIENT
  Age: 18 Year
  Sex: Female

DRUGS (3)
  1. LAMOTRIGINE (LAMOTRIGINE) TABLET [Suspect]
     Active Substance: LAMOTRIGINE
     Indication: PRODUCT USED FOR UNKNOWN INDICATION
  2. VENLAFAXINE [Concomitant]
     Active Substance: VENLAFAXINE HYDROCHLORIDE
  3. MELATONIN [Suspect]
     Active Substance: MELATONIN

REACTIONS (11)
  - Suicide attempt [None]
  - Tremor [None]
  - Feeling hot [None]
  - Dizziness [None]
  - Convulsion [None]
  - Feeling jittery [None]
  - Nystagmus [None]
  - Mydriasis [None]
  - Intentional overdose [None]
  - Nausea [None]
  - Sinus tachycardia [None]
